FAERS Safety Report 10243202 (Version 2)
Quarter: 2014Q3

REPORT INFORMATION
  Report Type: Spontaneous
  Country: US (occurrence: None)
  Receive Date: 20140616
  Receipt Date: 20140703
  Transmission Date: 20150326
  Serious: Yes (Hospitalization)
  Sender: FDA-Public Use
  Company Number: UNT-2014-001803

PATIENT
  Age: 66 Year
  Sex: Male

DRUGS (3)
  1. REVATIO (SILDENAFIL CITRATE) [Concomitant]
  2. TRACLEER [Concomitant]
     Active Substance: BOSENTAN\BOSENTAN MONOHYDRATE
  3. REMODULIN [Suspect]
     Active Substance: TREPROSTINIL
     Indication: COR PULMONALE CHRONIC
     Route: 058
     Dates: start: 20100527

REACTIONS (3)
  - Dyspnoea [None]
  - Acute respiratory failure [None]
  - Pulmonary oedema [None]

NARRATIVE: CASE EVENT DATE: 20140526
